FAERS Safety Report 13945939 (Version 2)
Quarter: 2017Q4

REPORT INFORMATION
  Report Type: Report from Study
  Country: US (occurrence: US)
  Receive Date: 20170907
  Receipt Date: 20171027
  Transmission Date: 20180320
  Serious: Yes (Other)
  Sender: FDA-Public Use
  Company Number: US-SA-2017SA162728

PATIENT
  Age: 51 Year
  Sex: Male

DRUGS (1)
  1. AUBAGIO [Suspect]
     Active Substance: TERIFLUNOMIDE
     Indication: MULTIPLE SCLEROSIS
     Route: 048
     Dates: start: 201705, end: 201706

REACTIONS (7)
  - Atypical pneumonia [Recovered/Resolved]
  - Epstein-Barr virus infection [Not Recovered/Not Resolved]
  - Malaise [Recovered/Resolved]
  - Lyme disease [Not Recovered/Not Resolved]
  - Product use in unapproved indication [Unknown]
  - Liver function test decreased [Recovered/Resolved]
  - Full blood count decreased [Unknown]

NARRATIVE: CASE EVENT DATE: 201705
